FAERS Safety Report 7635241-3 (Version None)
Quarter: 2011Q3

REPORT INFORMATION
  Report Type: 
  Country: None (occurrence: None)
  Receive Date: 20110718
  Receipt Date: 20110713
  Transmission Date: 20111222
  Serious: Yes (Other)
  Sender: FDA-Public Use
  Company Number: CIP11001660

PATIENT
  Sex: Male

DRUGS (1)
  1. ACTONEL [Suspect]
     Dosage: HAD TAKEN TWICE, ORAL
     Route: 048

REACTIONS (2)
  - RASH [None]
  - RENAL FAILURE [None]
